FAERS Safety Report 5444724-6 (Version None)
Quarter: 2007Q3

REPORT INFORMATION
  Report Type: 
  Country: None (occurrence: None)
  Receive Date: 20070827
  Receipt Date: 20070817
  Transmission Date: 20080115
  Serious: Yes (Other)
  Sender: FDA-Public Use
  Company Number: CHNY2007GB02731

PATIENT
  Age: 53 Year
  Sex: Female

DRUGS (1)
  1. NICOTINE [Suspect]
     Dosage: TRANSDERMAL
     Route: 062

REACTIONS (2)
  - CEREBROVASCULAR SPASM [None]
  - ISCHAEMIC STROKE [None]
